FAERS Safety Report 9170478 (Version 1)
Quarter: 2013Q1

REPORT INFORMATION
  Report Type: Spontaneous
  Country: SE (occurrence: None)
  Receive Date: 20130311
  Receipt Date: 20130311
  Transmission Date: 20140127
  Serious: Yes (Hospitalization)
  Sender: FDA-Public Use
  Company Number: 2013-03587

PATIENT
  Age: 54 Year
  Sex: 0

DRUGS (8)
  1. BUTALBITAL-ASPIRIN-CAFFEINE [Suspect]
     Dosage: SINGLE
     Route: 048
     Dates: start: 20121129, end: 20121129
  2. FEVERALL [Suspect]
     Dosage: SINGLE
  3. BISOPROLOL (BISOPROLOL) [Concomitant]
  4. TRAMADOL (TRAMADOL) [Concomitant]
  5. OMEPRAZOLE (OMEPRAZOLE) [Concomitant]
  6. SYMBICORT (BUDESONIDE), FORMOTEROL FUMARATE) [Concomitant]
  7. TROMBYL (ACETYLSALICYLIC ACID) [Concomitant]
  8. SPIRONOLAKTON (SPIRONOLACTONE) [Concomitant]

REACTIONS (3)
  - Toxicity to various agents [None]
  - Nausea [None]
  - Toothache [None]
